FAERS Safety Report 9712026 (Version 2)
Quarter: 2013Q4

REPORT INFORMATION
  Report Type: Spontaneous
  Country: US (occurrence: US)
  Receive Date: 20131126
  Receipt Date: 20131126
  Transmission Date: 20140711
  Serious: No
  Sender: FDA-Public Use
  Company Number: US-BRISTOL-MYERS SQUIBB COMPANY-19135037

PATIENT
  Age: 54 Year
  Sex: Female
  Weight: 112.92 kg

DRUGS (5)
  1. BYDUREON [Suspect]
     Indication: TYPE 2 DIABETES MELLITUS
     Route: 058
  2. GLYBURIDE [Concomitant]
  3. METFORMIN [Concomitant]
  4. LISINOPRIL [Concomitant]
  5. VITAMIN E [Concomitant]

REACTIONS (3)
  - Injection site nodule [Unknown]
  - Injection site discolouration [Unknown]
  - Wrong technique in drug usage process [Recovered/Resolved]
